FAERS Safety Report 8780258 (Version 1)
Quarter: 2012Q4

REPORT INFORMATION
  Report Type: Spontaneous
  Country: DE (occurrence: None)
  Receive Date: 20120829
  Receipt Date: 20120829
  Transmission Date: 20130627
  Serious: Yes (Hospitalization, Other)
  Sender: FDA-Public Use
  Company Number: GER/GER/12/0025556

PATIENT
  Age: 32 Year
  Sex: Male

DRUGS (2)
  1. CIPROFLOXACIN (CIPROFLOXACIN) [Suspect]
     Indication: LOWER URINARY TRACT INFECTION
     Dosage: 2 in 1 d
     Route: 048
  2. FLECAINIDE (FLECAINIDE) [Suspect]
     Indication: ARRHYTHMIA

REACTIONS (3)
  - Torsade de pointes [None]
  - Drug interaction [None]
  - Urinary tract infection [None]
